FAERS Safety Report 21065415 (Version 3)
Quarter: 2022Q4

REPORT INFORMATION
  Report Type: Spontaneous
  Country: CH (occurrence: CH)
  Receive Date: 20220711
  Receipt Date: 20221210
  Transmission Date: 20230113
  Serious: Yes (Hospitalization, Other)
  Sender: FDA-Public Use
  Company Number: CH-SM-2022-16206

PATIENT
  Age: 67 Year
  Sex: Male

DRUGS (13)
  1. OPDIVO [Suspect]
     Active Substance: NIVOLUMAB
     Indication: Metastatic malignant melanoma
     Dosage: IN TOTAL
     Route: 042
     Dates: start: 20220217, end: 20220217
  2. OPDIVO [Suspect]
     Active Substance: NIVOLUMAB
     Dosage: IN TOTAL
     Route: 042
     Dates: start: 20220310, end: 20220310
  3. OPDIVO [Suspect]
     Active Substance: NIVOLUMAB
     Dosage: IN TOTAL
     Route: 042
     Dates: start: 20220331, end: 20220331
  4. OPDIVO [Suspect]
     Active Substance: NIVOLUMAB
     Dosage: IN TOTAL
     Route: 042
     Dates: start: 20220525, end: 20220525
  5. OPDIVO [Suspect]
     Active Substance: NIVOLUMAB
     Dosage: IN TOTAL
     Route: 042
     Dates: start: 20220615, end: 20220615
  6. OPDIVO [Suspect]
     Active Substance: NIVOLUMAB
     Dosage: IN TOTAL
     Route: 042
     Dates: start: 20220629, end: 20220629
  7. YERVOY [Suspect]
     Active Substance: IPILIMUMAB
     Indication: Metastatic malignant melanoma
     Dosage: IN TOTAL
     Route: 042
     Dates: start: 20220217, end: 20220217
  8. YERVOY [Suspect]
     Active Substance: IPILIMUMAB
     Dosage: IN TOTAL
     Route: 042
     Dates: start: 20220310, end: 20220310
  9. YERVOY [Suspect]
     Active Substance: IPILIMUMAB
     Dosage: IN TOTAL
     Route: 042
     Dates: start: 20220331, end: 20220331
  10. YERVOY [Suspect]
     Active Substance: IPILIMUMAB
     Dosage: IN TOTAL
     Route: 042
     Dates: start: 20220525, end: 20220525
  11. PANTOPRAZOLE SODIUM [Concomitant]
     Active Substance: PANTOPRAZOLE SODIUM
     Indication: Product used for unknown indication
     Route: 048
  12. IBUPROFEN [Concomitant]
     Active Substance: IBUPROFEN
     Indication: Product used for unknown indication
     Dosage: AS NECESSARY
     Route: 048
  13. METAMIZOLE [Concomitant]
     Active Substance: METAMIZOLE
     Indication: Product used for unknown indication
     Dosage: AS NECESSARY
     Route: 048

REACTIONS (1)
  - Facial paralysis [Recovered/Resolved]

NARRATIVE: CASE EVENT DATE: 20220419
